FAERS Safety Report 16147581 (Version 1)
Quarter: 2019Q2

REPORT INFORMATION
  Report Type: Spontaneous
  Country: IE (occurrence: IE)
  Receive Date: 20190402
  Receipt Date: 20190402
  Transmission Date: 20190711
  Serious: Yes (Death, Other)
  Sender: FDA-Public Use
  Company Number: IE-BRISTOL-MYERS SQUIBB COMPANY-BMS-2019-030598

PATIENT
  Age: 83 Year
  Sex: Female

DRUGS (21)
  1. BETMIGA [Concomitant]
     Active Substance: MIRABEGRON
     Indication: PRODUCT USED FOR UNKNOWN INDICATION
     Route: 065
  2. GALFER [Concomitant]
     Active Substance: IRON
     Indication: PRODUCT USED FOR UNKNOWN INDICATION
     Dosage: 305 MILLIGRAM, PER DAY
     Route: 065
  3. RANITIC [Concomitant]
     Active Substance: RANITIDINE HYDROCHLORIDE
     Indication: PRODUCT USED FOR UNKNOWN INDICATION
     Dosage: 150 MILLIGRAM, PER DAY
     Route: 065
  4. DIFENE [Concomitant]
     Active Substance: DICLOFENAC SODIUM
     Indication: PRODUCT USED FOR UNKNOWN INDICATION
     Route: 065
  5. BURINEX [Concomitant]
     Active Substance: BUMETANIDE
     Indication: PRODUCT USED FOR UNKNOWN INDICATION
     Dosage: 1 MILLIGRAM, PER DAY
     Route: 065
  6. MAGNESIUM ASPARTATE DIHYDRATE [Concomitant]
     Indication: PRODUCT USED FOR UNKNOWN INDICATION
     Dosage: 1 DOSAGE FORM, 11 BAG FOUR TIMES DAILY
     Route: 065
  7. ELIQUIS [Suspect]
     Active Substance: APIXABAN
     Indication: CEREBROVASCULAR ACCIDENT PROPHYLAXIS
     Route: 065
  8. MACRODANTIN [Concomitant]
     Active Substance: NITROFURANTOIN
     Indication: PRODUCT USED FOR UNKNOWN INDICATION
     Dosage: 100 MILLIGRAM, PER DAY
     Route: 065
  9. VAGIFEM [Concomitant]
     Active Substance: ESTRADIOL
     Indication: PRODUCT USED FOR UNKNOWN INDICATION
     Dosage: 10 MICROGRAM, 1 PESS, TWICE/WEEK
     Route: 065
  10. NEBILET [Concomitant]
     Active Substance: NEBIVOLOL
     Indication: PRODUCT USED FOR UNKNOWN INDICATION
     Dosage: 0.5 MILLIGRAM, QD
     Route: 065
  11. ELIQUIS [Suspect]
     Active Substance: APIXABAN
     Indication: DEEP VEIN THROMBOSIS
     Dosage: 2.5 MILLIGRAM, BID
     Route: 048
  12. LYRICA [Concomitant]
     Active Substance: PREGABALIN
     Indication: PRODUCT USED FOR UNKNOWN INDICATION
     Dosage: 75 MILLIGRAM
     Route: 065
  13. LIPITOR [Concomitant]
     Active Substance: ATORVASTATIN CALCIUM
     Indication: PRODUCT USED FOR UNKNOWN INDICATION
     Dosage: 10 MILLIGRAM, PER DAY
     Route: 065
  14. QUININE SULPHATE [Concomitant]
     Active Substance: QUININE SULFATE
     Indication: PRODUCT USED FOR UNKNOWN INDICATION
     Dosage: 300 MILLIGRAM, PER DAY
     Route: 065
  15. CALCICHEW D3 FORTE [Concomitant]
     Active Substance: CALCIUM\CHOLECALCIFEROL
     Indication: PRODUCT USED FOR UNKNOWN INDICATION
     Dosage: 500MG + 400 UNITS TABLETS
     Route: 065
  16. PARACETAMOL [Concomitant]
     Active Substance: ACETAMINOPHEN
     Indication: PRODUCT USED FOR UNKNOWN INDICATION
     Dosage: 500 MILLIGRAM, QID
     Route: 065
  17. DUROGESIC [Concomitant]
     Active Substance: FENTANYL
     Indication: PRODUCT USED FOR UNKNOWN INDICATION
     Dosage: EVERY 3 DAYS
     Route: 062
  18. ELTROXIN [Concomitant]
     Active Substance: LEVOTHYROXINE
     Indication: PRODUCT USED FOR UNKNOWN INDICATION
     Dosage: 50 MICROGRAM, PER DAY
     Route: 065
  19. ALLOPURINOL. [Concomitant]
     Active Substance: ALLOPURINOL
     Indication: PRODUCT USED FOR UNKNOWN INDICATION
     Dosage: 300 MILLIGRAM
     Route: 065
  20. PANTOFLUX                          /01263204/ [Concomitant]
     Indication: PRODUCT USED FOR UNKNOWN INDICATION
     Dosage: 40 MILLIGRAM
     Route: 065
  21. HALCION [Concomitant]
     Active Substance: TRIAZOLAM
     Indication: PRODUCT USED FOR UNKNOWN INDICATION
     Dosage: 125 MICROGRAM, PER DAY
     Route: 065

REACTIONS (9)
  - Pneumonia [Fatal]
  - Subdural haemorrhage [Fatal]
  - Diverticulitis [Fatal]
  - Sepsis [Fatal]
  - Fall [Fatal]
  - Cerebral infarction [Fatal]
  - Ischaemic cardiomyopathy [Fatal]
  - Chronic kidney disease [Fatal]
  - Aortic valve disease [Fatal]
